FAERS Safety Report 9202134 (Version 2)
Quarter: 2013Q2

REPORT INFORMATION
  Report Type: Spontaneous
  Country: US (occurrence: US)
  Receive Date: 20130401
  Receipt Date: 20130620
  Transmission Date: 20140414
  Serious: Yes (Hospitalization)
  Sender: FDA-Public Use
  Company Number: US-GLAXOSMITHKLINE-A1000189A

PATIENT
  Age: 63 Year
  Sex: Female

DRUGS (2)
  1. ADVAIR [Suspect]
     Indication: PRODUCT USED FOR UNKNOWN INDICATION
     Route: 065
     Dates: start: 20120914
  2. VENTOLIN HFA [Suspect]
     Indication: PRODUCT USED FOR UNKNOWN INDICATION
     Dosage: 4PUFF FOUR TIMES PER DAY
     Route: 055
     Dates: start: 201209

REACTIONS (5)
  - Headache [Unknown]
  - Overdose [Unknown]
  - Incorrect dose administered [Unknown]
  - Dyspnoea [Unknown]
  - Overdose [Unknown]
